FAERS Safety Report 24085581 (Version 1)
Quarter: 2024Q3

REPORT INFORMATION
  Report Type: Spontaneous
  Country: US (occurrence: US)
  Receive Date: 20240712
  Receipt Date: 20240712
  Transmission Date: 20241017
  Serious: No
  Sender: ABBVIE
  Company Number: US-ABBVIE-5835189

PATIENT
  Sex: Female

DRUGS (1)
  1. RINVOQ [Suspect]
     Active Substance: UPADACITINIB
     Indication: Product used for unknown indication
     Route: 048

REACTIONS (9)
  - Migraine [Unknown]
  - Fatigue [Unknown]
  - Muscle spasms [Unknown]
  - Disturbance in attention [Unknown]
  - Cough [Unknown]
  - Balance disorder [Unknown]
  - Dizziness [Unknown]
  - Mania [Unknown]
  - Mobility decreased [Unknown]
